FAERS Safety Report 20665668 (Version 1)
Quarter: 2022Q2

REPORT INFORMATION
  Report Type: Spontaneous
  Country: CA (occurrence: CA)
  Receive Date: 20220402
  Receipt Date: 20220402
  Transmission Date: 20220721
  Serious: Yes (Hospitalization)
  Sender: FDA-Public Use
  Company Number: None

PATIENT
  Sex: Male

DRUGS (8)
  1. OXALIPLATIN [Suspect]
     Active Substance: OXALIPLATIN
     Indication: Product used for unknown indication
  2. FLUOROURACIL [Concomitant]
     Active Substance: FLUOROURACIL
  3. AMLODIPINE [Concomitant]
     Active Substance: AMLODIPINE BESYLATE
  4. ENOXAPARIN [Concomitant]
     Active Substance: ENOXAPARIN
  5. IRINOTECAN [Concomitant]
     Active Substance: IRINOTECAN
     Route: 042
  6. LEUCOVORIN [Concomitant]
     Active Substance: LEUCOVORIN
  7. NAPROXEN [Concomitant]
     Active Substance: NAPROXEN
  8. ZOLMITRIPTAN [Concomitant]
     Active Substance: ZOLMITRIPTAN

REACTIONS (6)
  - Asthenia [Recovering/Resolving]
  - Constipation [Recovering/Resolving]
  - Febrile neutropenia [Recovering/Resolving]
  - Malaise [Recovering/Resolving]
  - Nausea [Recovering/Resolving]
  - Pancytopenia [Recovering/Resolving]
